FAERS Safety Report 13991185 (Version 2)
Quarter: 2017Q3

REPORT INFORMATION
  Report Type: Spontaneous
  Country: US (occurrence: US)
  Receive Date: 20170920
  Receipt Date: 20170928
  Transmission Date: 20171128
  Serious: Yes (Hospitalization, Other)
  Sender: FDA-Public Use
  Company Number: US-DRREDDYS-USA/USA/17/0093509

PATIENT
  Age: 84 Year
  Sex: Male

DRUGS (2)
  1. DONEPEZIL HYDROCHLORIDE TABLETS [Suspect]
     Active Substance: DONEPEZIL HYDROCHLORIDE
     Indication: PRODUCT USED FOR UNKNOWN INDICATION
     Route: 048
  2. DONEPEZIL HYDROCHLORIDE TABLETS [Suspect]
     Active Substance: DONEPEZIL HYDROCHLORIDE
     Route: 048

REACTIONS (10)
  - Accidental overdose [Unknown]
  - Nausea [Unknown]
  - Vomiting [Unknown]
  - Electrocardiogram QT prolonged [Recovered/Resolved]
  - Bradycardia [Recovered/Resolved]
  - Diarrhoea [Unknown]
  - Hyperhidrosis [Unknown]
  - Fatigue [Unknown]
  - Salivary hypersecretion [Unknown]
  - Confusional state [Unknown]
